FAERS Safety Report 16743555 (Version 1)
Quarter: 2019Q3

REPORT INFORMATION
  Report Type: Spontaneous
  Country: FR (occurrence: FR)
  Receive Date: 20190827
  Receipt Date: 20190827
  Transmission Date: 20191005
  Serious: Yes (Life-Threatening)
  Sender: FDA-Public Use
  Company Number: FR-ACCORD-152686

PATIENT
  Age: 44 Year
  Sex: Male
  Weight: 89 kg

DRUGS (3)
  1. DAPTOMYCIN ACCORD [Suspect]
     Active Substance: DAPTOMYCIN
     Indication: HIP ARTHROPLASTY
     Route: 042
     Dates: start: 20190722, end: 20190722
  2. PIPERACILLIN TAZOBACTAM KABI [Concomitant]
     Active Substance: PIPERACILLIN SODIUM\TAZOBACTAM SODIUM
     Indication: HIP ARTHROPLASTY
     Route: 042
     Dates: start: 20190722, end: 20190722
  3. GENTAMICINE PANPHARMA [Concomitant]
     Active Substance: GENTAMICIN
     Indication: HIP ARTHROPLASTY
     Dates: start: 20190722, end: 20190722

REACTIONS (1)
  - Anaphylactic shock [Recovered/Resolved]

NARRATIVE: CASE EVENT DATE: 20190722
